FAERS Safety Report 4788364-0 (Version None)
Quarter: 2005Q4

REPORT INFORMATION
  Report Type: 
  Country: None (occurrence: None)
  Receive Date: 20051005
  Receipt Date: 20050923
  Transmission Date: 20060501
  Serious: Yes (Hospitalization)
  Sender: FDA-Public Use
  Company Number: AU-BRISTOL-MYERS SQUIBB COMPANY-13119797

PATIENT
  Sex: Female

DRUGS (2)
  1. AVAPRO [Suspect]
  2. HEXAMINE HIPPURATE [Concomitant]

REACTIONS (1)
  - HYPONATRAEMIA [None]
